APPROVED DRUG PRODUCT: VAZCULEP
Active Ingredient: PHENYLEPHRINE HYDROCHLORIDE
Strength: 10MG/ML (10MG/ML)
Dosage Form/Route: SOLUTION;INTRAVENOUS
Application: N204300 | Product #001
Applicant: EXELA PHARMA SCIENCES LLC
Approved: Jun 27, 2014 | RLD: Yes | RS: No | Type: DISCN